FAERS Safety Report 11359703 (Version 3)
Quarter: 2015Q4

REPORT INFORMATION
  Report Type: Report from Study
  Country: AU (occurrence: AU)
  Receive Date: 20150808
  Receipt Date: 20151116
  Transmission Date: 20160304
  Serious: Yes (Other)
  Sender: FDA-Public Use
  Company Number: AU-BRISTOL-MYERS SQUIBB COMPANY-BMS-2015-029537

PATIENT
  Sex: Male

DRUGS (1)
  1. DASATINIB [Suspect]
     Active Substance: DASATINIB
     Indication: CHRONIC MYELOID LEUKAEMIA
     Dosage: 100 MG, QD
     Route: 048
     Dates: start: 20150112

REACTIONS (13)
  - Knee arthroplasty [Unknown]
  - Osteoarthritis [Unknown]
  - Headache [Recovering/Resolving]
  - Rash [Not Recovered/Not Resolved]
  - Eating disorder [Recovering/Resolving]
  - Drug dose omission [Unknown]
  - Acne [Recovering/Resolving]
  - Blister [Not Recovered/Not Resolved]
  - Nausea [Not Recovered/Not Resolved]
  - Folliculitis [Recovering/Resolving]
  - Fatigue [Recovering/Resolving]
  - Lethargy [Not Recovered/Not Resolved]
  - Infection [Recovering/Resolving]
